FAERS Safety Report 5357084-6 (Version None)
Quarter: 2007Q2

REPORT INFORMATION
  Report Type: 
  Country: None (occurrence: None)
  Receive Date: 20070612
  Receipt Date: 20070612
  Transmission Date: 20071010
  Serious: No
  Sender: FDA-Public Use
  Company Number: None

PATIENT
  Sex: Female
  Weight: 99.5192 kg

DRUGS (1)
  1. TAXOTERE [Suspect]
     Indication: BREAST CANCER
     Dosage: 161 MG Q21 DAYS IV
     Route: 042
     Dates: start: 20070507

REACTIONS (5)
  - BACK PAIN [None]
  - ERYTHEMA [None]
  - INFUSION RELATED REACTION [None]
  - NEUTROPHIL COUNT INCREASED [None]
  - THROAT IRRITATION [None]
